FAERS Safety Report 16414551 (Version 1)
Quarter: 2019Q2

REPORT INFORMATION
  Report Type: Spontaneous
  Country: PL (occurrence: PL)
  Receive Date: 20190611
  Receipt Date: 20190611
  Transmission Date: 20190711
  Serious: Yes (Other)
  Sender: FDA-Public Use
  Company Number: PL-ACTELION-A-CH2019-191197

PATIENT
  Age: 40 Year
  Sex: Female

DRUGS (1)
  1. VELETRI [Suspect]
     Active Substance: EPOPROSTENOL
     Indication: PULMONARY ARTERIAL HYPERTENSION
     Dosage: UNK
     Route: 042
     Dates: start: 201612

REACTIONS (10)
  - Endometrial hypertrophy [Unknown]
  - Invasive ductal breast carcinoma [Unknown]
  - Skin lesion [Unknown]
  - Uterine dilation and curettage [Unknown]
  - Mastectomy [Unknown]
  - Uterine polyp [Unknown]
  - Thrombocytopenia [Unknown]
  - Catheter site related reaction [Unknown]
  - Hysterectomy [Unknown]
  - Leukopenia [Unknown]

NARRATIVE: CASE EVENT DATE: 2017
